FAERS Safety Report 19088919 (Version 1)
Quarter: 2021Q2

REPORT INFORMATION
  Report Type: Spontaneous
  Country: US (occurrence: US)
  Receive Date: 20210403
  Receipt Date: 20210403
  Transmission Date: 20210717
  Serious: No
  Sender: FDA-Public Use
  Company Number: US-ASTRAZENECA-2021A177175

PATIENT
  Sex: Female
  Weight: 61.2 kg

DRUGS (2)
  1. BREZTRI AEROSPHERE [Suspect]
     Active Substance: BUDESONIDE\FORMOTEROL\GLYCOPYRRONIUM
     Indication: CHRONIC OBSTRUCTIVE PULMONARY DISEASE
     Dosage: BREZTRI 160 MCG/9 MCG/4.8 MCG,2 PUFFS ONCE DAILY
     Route: 055
     Dates: start: 20210224
  2. ANORO ELLIPTA [Concomitant]
     Active Substance: UMECLIDINIUM BROMIDE\VILANTEROL TRIFENATATE

REACTIONS (2)
  - Off label use [Not Recovered/Not Resolved]
  - Dysphonia [Recovering/Resolving]
